FAERS Safety Report 7587626-1 (Version None)
Quarter: 2011Q3

REPORT INFORMATION
  Report Type: 
  Country: None (occurrence: None)
  Receive Date: 20110704
  Receipt Date: 20110623
  Transmission Date: 20111222
  Serious: Yes (Hospitalization)
  Sender: FDA-Public Use
  Company Number: PHHO2011US05141

PATIENT
  Sex: Male
  Weight: 65.9 kg

DRUGS (9)
  1. BLINDED NO TREATMENT RECEIVED [Suspect]
     Indication: DEMENTIA ALZHEIMER'S TYPE
     Dosage: UNK
     Dates: start: 20101023, end: 20101119
  2. EXELON [Suspect]
     Dosage: UNK
     Dates: start: 20101120, end: 20110316
  3. BLINDED NO TREATMENT RECEIVED [Suspect]
     Dosage: UNK
     Dates: start: 20110313
  4. EXELON [Suspect]
     Dosage: UNK
     Dates: start: 20110313
  5. EXELON [Suspect]
     Indication: DEMENTIA ALZHEIMER'S TYPE
     Dosage: UNK
     Dates: start: 20101023, end: 20101119
  6. BLINDED NO TREATMENT RECEIVED [Suspect]
     Dosage: UNK
     Dates: start: 20101120, end: 20110316
  7. EXELON [Suspect]
     Indication: DEMENTIA ALZHEIMER'S TYPE
     Dosage: UNK
     Dates: start: 20101023, end: 20101119
  8. EXELON [Suspect]
     Dosage: UNK
     Dates: start: 20101120, end: 20110311
  9. EXELON [Suspect]
     Dosage: UNK
     Dates: start: 20110313

REACTIONS (3)
  - HYPOTENSION [None]
  - DEHYDRATION [None]
  - SYNCOPE [None]
